FAERS Safety Report 4931939-6 (Version None)
Quarter: 2006Q1

REPORT INFORMATION
  Report Type: 
  Country: None (occurrence: None)
  Receive Date: 20060303
  Receipt Date: 20060220
  Transmission Date: 20060701
  Serious: Yes (Hospitalization)
  Sender: FDA-Public Use
  Company Number: FR-MERCK-0602USA05537

PATIENT
  Age: 80 Year
  Sex: Male
  Weight: 76 kg

DRUGS (4)
  1. MODURETIC 5-50 [Suspect]
     Route: 048
  2. ENALAPRIL MALEATE [Suspect]
     Route: 065
  3. KERLONE [Suspect]
     Route: 065
     Dates: end: 20060106
  4. DANATROL [Concomitant]
     Route: 065

REACTIONS (4)
  - BRADYCARDIA [None]
  - FALL [None]
  - LOSS OF CONSCIOUSNESS [None]
  - MALAISE [None]
